FAERS Safety Report 10160869 (Version 1)
Quarter: 2014Q2

REPORT INFORMATION
  Report Type: Report from Study
  Country: GB (occurrence: GB)
  Receive Date: 20140508
  Receipt Date: 20140508
  Transmission Date: 20141212
  Serious: Yes (Hospitalization)
  Sender: FDA-Public Use
  Company Number: GB-US-EMD SERONO, INC.-7289774

PATIENT
  Sex: Male

DRUGS (4)
  1. SAIZEN [Suspect]
     Indication: PRODUCT USED FOR UNKNOWN INDICATION
     Route: 058
     Dates: start: 20091027
  2. HYDROCORTISONE [Concomitant]
     Indication: BLOOD CORTISOL DECREASED
  3. TESTIM [Concomitant]
     Indication: PRODUCT USED FOR UNKNOWN INDICATION
  4. THYROXINE [Concomitant]
     Indication: PRODUCT USED FOR UNKNOWN INDICATION

REACTIONS (1)
  - Circulatory collapse [Unknown]
